FAERS Safety Report 24077244 (Version 2)
Quarter: 2025Q2

REPORT INFORMATION
  Report Type: Spontaneous
  Country: US (occurrence: US)
  Receive Date: 20240711
  Receipt Date: 20250605
  Transmission Date: 20250716
  Serious: No
  Sender: PIERRE FABRE MEDICAMENT
  Company Number: US-PFM-2023-04808

PATIENT
  Sex: Male
  Weight: 8.177 kg

DRUGS (1)
  1. HEMANGEOL [Suspect]
     Active Substance: PROPRANOLOL HYDROCHLORIDE
     Indication: Haemangioma
     Dosage: 2.8 ML, BID (2/DAY)
     Dates: start: 20230327

REACTIONS (3)
  - Fungal infection [Unknown]
  - Nasopharyngitis [Unknown]
  - Illness [Unknown]
